FAERS Safety Report 5469266-3 (Version None)
Quarter: 2007Q3

REPORT INFORMATION
  Report Type: 
  Country: None (occurrence: None)
  Receive Date: 20070925
  Receipt Date: 20070925
  Transmission Date: 20080115
  Serious: Yes (Hospitalization)
  Sender: FDA-Public Use
  Company Number: None

PATIENT
  Sex: Female

DRUGS (9)
  1. AVASTIN [Suspect]
     Indication: MACULAR DEGENERATION
     Dosage: INTRAVITREAL
     Dates: start: 20070424
  2. VISUDYNE [Suspect]
     Indication: MACULAR DEGENERATION
     Dosage: INFUSION
     Dates: start: 20070215
  3. DEXAMETHASONE 0.5MG TAB [Suspect]
     Indication: MACULAR DEGENERATION
     Dosage: INTRAVITREAL
     Dates: start: 20070215
  4. ARICEPT [Concomitant]
  5. LISINOPRIL [Concomitant]
  6. MEGACE [Concomitant]
  7. TYLENOL (CAPLET) [Concomitant]
  8. IBUPROFEN [Concomitant]
  9. LACTULOSE [Concomitant]

REACTIONS (4)
  - ABDOMINAL PAIN [None]
  - DEMENTIA [None]
  - FAECALOMA [None]
  - RECTAL PROLAPSE [None]
